FAERS Safety Report 23647167 (Version 1)
Quarter: 2024Q1

REPORT INFORMATION
  Report Type: Spontaneous
  Country: US (occurrence: US)
  Receive Date: 20240319
  Receipt Date: 20240319
  Transmission Date: 20240410
  Serious: Yes (Hospitalization, Other)
  Sender: FDA-Public Use
  Company Number: US-AUROBINDO-AUR-APL-2024-012279

PATIENT
  Age: 66 Year
  Sex: Female

DRUGS (1)
  1. FLUOXETINE [Suspect]
     Active Substance: FLUOXETINE HYDROCHLORIDE
     Indication: Affective disorder
     Dosage: UNK
     Route: 065

REACTIONS (4)
  - Organising pneumonia [Recovering/Resolving]
  - Encephalopathy [Unknown]
  - Colitis ischaemic [Unknown]
  - Procedural pneumothorax [Unknown]
